FAERS Safety Report 6217833-1 (Version None)
Quarter: 2009Q2

REPORT INFORMATION
  Report Type: 
  Country: None (occurrence: None)
  Receive Date: 20090604
  Receipt Date: 20090527
  Transmission Date: 20091009
  Serious: Yes (Hospitalization)
  Sender: FDA-Public Use
  Company Number: 6051747

PATIENT
  Age: 79 Year
  Sex: Female

DRUGS (7)
  1. LEVOTHYROXINE SODIUM [Suspect]
     Indication: HYPOTHYROIDISM
     Dosage: 1 DOSAGE FORMS (1 DOSAGE FORMS, 1 IN 1 D) ORAL
     Route: 048
  2. THALIDOMIDE [Suspect]
     Indication: MULTIPLE MYELOMA
     Dosage: 100 MG (100 MG, 1 IN 1 D) ORAL
     Route: 048
     Dates: start: 20090208, end: 20090227
  3. DIGOXIN [Suspect]
     Indication: ARRHYTHMIA
     Dosage: 1 DOSAGE FORMS (1 DOSAGE FORMS, 1 IN 1 D) ORAL
     Route: 048
  4. LEXOMIL (TABLET) (BROMAZEPAM) [Suspect]
     Indication: ANXIETY
     Dosage: 0.25 DOSAGE FORMS (0.25 DOSAGE FORMS, 1 IN 1 D) ORAL
     Route: 048
     Dates: start: 20080607
  5. ALKERAN [Concomitant]
  6. PREDNISONE TAB [Concomitant]
  7. PAMIDRONATE DISODIUM [Concomitant]

REACTIONS (1)
  - CONSTIPATION [None]
